FAERS Safety Report 4737124-5 (Version None)
Quarter: 2005Q3

REPORT INFORMATION
  Report Type: 
  Country: None (occurrence: None)
  Receive Date: 20050804
  Receipt Date: 20050728
  Transmission Date: 20060218
  Serious: Yes (Hospitalization)
  Sender: FDA-Public Use
  Company Number: 2005-07-0487

PATIENT
  Age: 70 Year
  Sex: Female
  Weight: 60 kg

DRUGS (5)
  1. INTRON A [Suspect]
     Indication: CARCINOID TUMOUR OF THE PANCREAS
     Dosage: 4.5 MIO IU TIW SUBCUTANEO
     Route: 058
     Dates: start: 20050704
  2. ACETAMINOPHEN [Concomitant]
  3. PANTOZOL (PANTOPRAZOLE) TABLETS [Concomitant]
  4. KREON COATED TABLETS [Concomitant]
  5. DUROGESIC (FENTANYL) [Concomitant]

REACTIONS (2)
  - HYPERPARATHYROIDISM [None]
  - HYPOCALCAEMIA [None]
